FAERS Safety Report 8817160 (Version 1)
Quarter: 2012Q4

REPORT INFORMATION
  Report Type: Spontaneous
  Country: US (occurrence: None)
  Receive Date: 20121003
  Receipt Date: 20121003
  Transmission Date: 20130627
  Serious: No
  Sender: FDA-Public Use
  Company Number: None

PATIENT
  Age: 67 Year
  Sex: Female
  Weight: 92 kg

DRUGS (9)
  1. PIPERACILLIN / TAZOBACTAM [Suspect]
     Indication: SEPSIS
     Dosage: 3.375 gm, Q8, iv
     Route: 042
     Dates: start: 20120917, end: 20120919
  2. VANCOMYCIN [Suspect]
     Route: 042
     Dates: start: 20120916, end: 20120919
  3. DILAUDID [Concomitant]
  4. ATIVON [Concomitant]
  5. APAPL CODEINE [Concomitant]
  6. ONDANSETRON [Concomitant]
  7. LEVOJWXAUN [Concomitant]
  8. HYDROCORTISONE [Concomitant]
  9. PAVITOPRAZOLE [Concomitant]

REACTIONS (1)
  - Rash [None]
